FAERS Safety Report 6169737-0 (Version None)
Quarter: 2009Q2

REPORT INFORMATION
  Report Type: 
  Country: None (occurrence: None)
  Receive Date: 20090428
  Receipt Date: 20090423
  Transmission Date: 20091009
  Serious: Yes (Death)
  Sender: FDA-Public Use
  Company Number: FR-ROCHE-629359

PATIENT
  Sex: Male

DRUGS (8)
  1. RIVOTRIL [Suspect]
     Indication: AGITATION
     Dosage: DRUG: RIVOTRIL 2.5 MG/ML
     Route: 048
     Dates: start: 20090301, end: 20090322
  2. LEPONEX [Interacting]
     Dosage: DOSE: 0.5 TABLET DAILY.
     Route: 048
     Dates: start: 20090319, end: 20090323
  3. ATARAX [Interacting]
     Indication: AGITATION
     Route: 048
     Dates: start: 20090321, end: 20090322
  4. ARICEPT [Concomitant]
     Indication: DEMENTIA
     Dosage: DOSE: 1 TABLET DAILY.
     Route: 048
     Dates: start: 20080801
  5. PRAXILENE [Concomitant]
     Indication: DEMENTIA
     Route: 048
     Dates: start: 20080101
  6. PLAVIX [Concomitant]
     Indication: MYOCARDIAL INFARCTION
     Route: 048
     Dates: start: 19940101
  7. PERINDOPRIL ERBUMINE [Concomitant]
     Indication: MYOCARDIAL INFARCTION
     Route: 048
     Dates: start: 19940101
  8. ELISOR [Concomitant]
     Indication: MYOCARDIAL INFARCTION
     Route: 048
     Dates: start: 19940101

REACTIONS (3)
  - DRUG INTERACTION [None]
  - LUNG DISORDER [None]
  - SOMNOLENCE [None]
